FAERS Safety Report 4716856-9 (Version None)
Quarter: 2005Q3

REPORT INFORMATION
  Report Type: 
  Country: None (occurrence: None)
  Receive Date: 20050714
  Receipt Date: 20050630
  Transmission Date: 20060218
  Serious: Yes (Other)
  Sender: FDA-Public Use
  Company Number: 2005-BP-11038RO

PATIENT
  Age: 22 Year
  Sex: Female

DRUGS (1)
  1. METHOTREXATE [Suspect]
     Indication: ACUTE LYMPHOCYTIC LEUKAEMIA
     Dosage: TOTAL CUM. DOSE 62.5 MG OVER 5 COURSES (NR), IT
     Route: 038

REACTIONS (16)
  - ABNORMAL BEHAVIOUR [None]
  - APHASIA [None]
  - BLOOD MAGNESIUM DECREASED [None]
  - CATHETER RELATED INFECTION [None]
  - COORDINATION ABNORMAL [None]
  - CRYING [None]
  - DIET REFUSAL [None]
  - DYSPHEMIA [None]
  - DYSPRAXIA [None]
  - ENCEPHALOPATHY [None]
  - FEBRILE NEUTROPENIA [None]
  - HEPATOMEGALY [None]
  - MUTISM [None]
  - REFUSAL OF TREATMENT BY PATIENT [None]
  - THERAPEUTIC RESPONSE DELAYED [None]
  - TONGUE DISORDER [None]
